FAERS Safety Report 5842227-8 (Version None)
Quarter: 2008Q3

REPORT INFORMATION
  Report Type: 
  Country: None (occurrence: None)
  Receive Date: 20080731
  Receipt Date: 20080621
  Transmission Date: 20090109
  Serious: No
  Sender: FDA-Public Use
  Company Number: US200806004123

PATIENT
  Age: 54 Year
  Sex: Female
  Weight: 101.6 kg

DRUGS (4)
  1. BYETTA [Suspect]
     Indication: TYPE 2 DIABETES MELLITUS
     Dosage: 5 UG, 2/D, SUBCUTANEOUS, 10 UG, 2/D, SUBCUTANEOUS
     Route: 058
     Dates: start: 20080517, end: 20080601
  2. BYETTA [Suspect]
     Indication: TYPE 2 DIABETES MELLITUS
     Dosage: 5 UG, 2/D, SUBCUTANEOUS, 10 UG, 2/D, SUBCUTANEOUS
     Route: 058
     Dates: start: 20080601
  3. EXENATIDE PEN, DISPOSABLE DEVICE (EXENATIDE PEN) PEN,DISPOSABLE [Concomitant]
  4. ACTOS [Concomitant]

REACTIONS (6)
  - ABDOMINAL DISTENSION [None]
  - DECREASED APPETITE [None]
  - DIARRHOEA [None]
  - FEELING COLD [None]
  - NAUSEA [None]
  - WEIGHT DECREASED [None]
